FAERS Safety Report 4357094-1 (Version None)
Quarter: 2004Q2

REPORT INFORMATION
  Report Type: 
  Country: None (occurrence: None)
  Receive Date: 20040507
  Receipt Date: 20040426
  Transmission Date: 20050107
  Serious: No
  Sender: FDA-Public Use
  Company Number: 2004GB00432

PATIENT
  Age: 53 Year
  Sex: Female

DRUGS (2)
  1. ZESTRIL [Suspect]
     Indication: HYPERTENSION
     Dosage: 10 MG QD PO
     Route: 048
     Dates: start: 19921127, end: 20010927
  2. ZESTORETIC [Suspect]
     Indication: HYPERTENSION
     Dosage: 10/12,5 MG
     Dates: start: 20010927, end: 20040301

REACTIONS (4)
  - ANTINUCLEAR ANTIBODY POSITIVE [None]
  - BETA 2 MICROGLOBULIN INCREASED [None]
  - FATIGUE [None]
  - RED BLOOD CELL SEDIMENTATION RATE INCREASED [None]
